FAERS Safety Report 6264092-X (Version None)
Quarter: 2009Q3

REPORT INFORMATION
  Report Type: 
  Country: None (occurrence: None)
  Receive Date: 20090706
  Receipt Date: 20080908
  Transmission Date: 20100115
  Serious: Yes (Death)
  Sender: FDA-Public Use
  Company Number: 585441

PATIENT
  Age: 55 Year
  Sex: Male

DRUGS (4)
  1. MYCOPHENOLATE MOFETIL [Suspect]
     Indication: RASH MACULO-PAPULAR
     Dates: start: 20030101, end: 20060401
  2. RITUXIMAB (RITUXIMAB) [Suspect]
     Indication: MYOSITIS
     Dosage: 375 MG/M2  1 PER 1 WEEK
     Dates: start: 20060401, end: 20060601
  3. PREDNISONE TAB [Suspect]
     Indication: DERMATOMYOSITIS
     Dosage: 1 MG/KG
     Dates: start: 19980101, end: 20030101
  4. HYDROXYCHLOROQUINE (HYDROXYCHLOROQUINE SULFATE) [Concomitant]

REACTIONS (3)
  - MYCOBACTERIAL INFECTION [None]
  - MYOSITIS [None]
  - WEIGHT DECREASED [None]
